FAERS Safety Report 10050066 (Version 2)
Quarter: 2014Q2

REPORT INFORMATION
  Report Type: Spontaneous
  Country: BR (occurrence: BR)
  Receive Date: 20140401
  Receipt Date: 20140401
  Transmission Date: 20141212
  Serious: Yes (Hospitalization)
  Sender: FDA-Public Use
  Company Number: BR-DSJP-DSJ-2014-01865

PATIENT
  Sex: 0

DRUGS (7)
  1. OLMESARTAN MEDOXOMIL [Suspect]
     Indication: HYPERTENSION
     Dosage: UNKNOWN
     Route: 048
     Dates: start: 2012
  2. OLMESARTAN MEDOXOMIL; HYDROCHLOROTHIAZIDE [Suspect]
     Indication: HYPERTENSION
     Dosage: 20/12.5MG
     Route: 048
  3. PREDNISOLONE [Suspect]
     Indication: SINUSITIS
     Dosage: UNKNOWN
     Route: 048
     Dates: start: 201305
  4. MOXIFLOXACIN [Suspect]
     Indication: SINUSITIS
     Dosage: UNKNOWN
     Route: 048
     Dates: start: 201305
  5. LEVOTHYROXINE SODIUM [Concomitant]
     Dosage: UNKNOWN
     Route: 065
  6. PAROXETINE [Concomitant]
     Dosage: UNKNOWN
     Route: 065
  7. EZETIMIBE [Concomitant]
     Dosage: UNKNOWN
     Route: 065

REACTIONS (13)
  - Cervical conisation [Recovered/Resolved]
  - Orthostatic hypotension [Recovered/Resolved]
  - Balance disorder [Recovered/Resolved]
  - Restlessness [Recovered/Resolved]
  - Vision blurred [Unknown]
  - Muscle spasms [Unknown]
  - Oesophageal stenosis [Unknown]
  - Muscle spasms [Recovered/Resolved]
  - Hypercholesterolaemia [Unknown]
  - Sinusitis [Unknown]
  - Mental disorder [Recovered/Resolved]
  - Blood uric acid increased [Unknown]
  - Drug administration error [Unknown]
